FAERS Safety Report 8070032-3 (Version None)
Quarter: 2012Q1

REPORT INFORMATION
  Report Type: 
  Country: None (occurrence: None)
  Receive Date: 20120125
  Receipt Date: 20111111
  Transmission Date: 20120608
  Serious: Yes (Hospitalization)
  Sender: FDA-Public Use
  Company Number: US-ROCHE-1011983

PATIENT
  Age: 53 Year
  Sex: Female
  Weight: 73.6 kg

DRUGS (3)
  1. IRINOTECAN HYDROCHLORIDE [Suspect]
     Indication: GLIOBLASTOMA
     Dosage: LAST DOSE PRIOR TO SAE: 29/SEP/2011,TOTAL DOSE ADMINISTERED:428 MG
     Route: 042
     Dates: start: 20110915
  2. TEMOZOLOMIDE [Suspect]
     Indication: GLIOBLASTOMA
  3. AVASTIN [Suspect]
     Indication: GLIOBLASTOMA
     Dosage: LAST DOSE PRIOR TO SAE: 29/SEP/2011, TOTAL DOSE ADMINISTERED:1472 MG
     Route: 042
     Dates: start: 20110929

REACTIONS (7)
  - DYSPNOEA [None]
  - ANGINA PECTORIS [None]
  - ATELECTASIS [None]
  - SINUS TACHYCARDIA [None]
  - DEHYDRATION [None]
  - PLATELET COUNT DECREASED [None]
  - CYSTITIS [None]
